FAERS Safety Report 4550787-2 (Version None)
Quarter: 2004Q4

REPORT INFORMATION
  Report Type: 
  Country: None (occurrence: None)
  Receive Date: 20041217
  Receipt Date: 20040930
  Transmission Date: 20050328
  Serious: No
  Sender: FDA-Public Use
  Company Number: 2004-BP-09039BP

PATIENT
  Age: 76 Year
  Sex: Female

DRUGS (9)
  1. SPIRIVA [Suspect]
     Indication: CHRONIC OBSTRUCTIVE AIRWAYS DISEASE
     Dosage: 18 MCG (18 MCG, OD), IH
     Route: 055
     Dates: start: 20040901, end: 20041001
  2. ACETYLSALICYLIC ACID SRT [Concomitant]
  3. ADVAIR (SERETIDE MITE) [Concomitant]
  4. ALLEGRA [Concomitant]
  5. FOSAMAX [Concomitant]
  6. CALCIUM GLUCONATE [Concomitant]
  7. FISH OILS (FISH OIL) [Concomitant]
  8. ESTRADIOL [Concomitant]
  9. ASPIRIN [Concomitant]

REACTIONS (6)
  - DYSPNOEA EXACERBATED [None]
  - EYE HAEMORRHAGE [None]
  - EYE SWELLING [None]
  - RASH [None]
  - URINARY TRACT INFECTION [None]
  - URTICARIA [None]
